FAERS Safety Report 7067320-6 (Version None)
Quarter: 2010Q4

REPORT INFORMATION
  Report Type: 
  Country: None (occurrence: None)
  Receive Date: 20101028
  Receipt Date: 20101007
  Transmission Date: 20110411
  Serious: Yes (Other)
  Sender: FDA-Public Use
  Company Number: US-BAYER-201018594NA

PATIENT
  Age: 16 Year
  Sex: Female
  Weight: 57 kg

DRUGS (6)
  1. YAZ [Suspect]
     Indication: CONTRACEPTION
     Route: 048
     Dates: start: 20061101, end: 20080901
  2. YASMIN [Suspect]
     Indication: CONTRACEPTION
     Route: 048
     Dates: start: 20061101, end: 20080901
  3. NSAID [Concomitant]
     Dosage: OVER TH COUNTER (NOS)
  4. LOESTRIN 24 FE [Concomitant]
     Dates: start: 20071203, end: 20080320
  5. LOESTRIN 24 FE [Concomitant]
     Dates: start: 20080802, end: 20080828
  6. PANCREASE MT 4 [Concomitant]
     Dates: start: 20080414

REACTIONS (8)
  - ABDOMINAL PAIN [None]
  - ABDOMINAL PAIN UPPER [None]
  - BILIARY DYSKINESIA [None]
  - CHOLECYSTITIS ACUTE [None]
  - CHOLECYSTITIS CHRONIC [None]
  - GASTROOESOPHAGEAL REFLUX DISEASE [None]
  - NAUSEA [None]
  - VOMITING [None]
